FAERS Safety Report 8619071-1 (Version None)
Quarter: 2012Q3

REPORT INFORMATION
  Report Type: 
  Country: None (occurrence: None)
  Receive Date: 20120824
  Receipt Date: 20120816
  Transmission Date: 20120928
  Serious: No
  Sender: FDA-Public Use
  Company Number: US-BAYER-2011-022297

PATIENT
  Sex: Female

DRUGS (1)
  1. MIRENA [Suspect]
     Indication: CONTRACEPTION
     Dosage: UNK, CONT
     Route: 015
     Dates: start: 20060921, end: 20110309

REACTIONS (3)
  - AMENORRHOEA [None]
  - PREGNANCY [None]
  - DEVICE DISLOCATION [None]
